FAERS Safety Report 9783941 (Version 2)
Quarter: 2015Q2

REPORT INFORMATION
  Report Type: Spontaneous
  Country: TW (occurrence: TW)
  Receive Date: 20131226
  Receipt Date: 20150513
  Transmission Date: 20150821
  Serious: Yes (Death, Other)
  Sender: FDA-Public Use
  Company Number: PHHY2013TW148886

PATIENT
  Age: 37 Year
  Sex: Female

DRUGS (4)
  1. CARBOPLATIN. [Suspect]
     Active Substance: CARBOPLATIN
     Indication: CHEMOTHERAPY
     Route: 065
  2. CARBOPLATIN. [Suspect]
     Active Substance: CARBOPLATIN
     Indication: METASTASES TO BONE
  3. CARBOPLATIN. [Suspect]
     Active Substance: CARBOPLATIN
     Indication: ADENOID CYSTIC CARCINOMA
  4. LIPODOX [Suspect]
     Active Substance: DOXORUBICIN HYDROCHLORIDE
     Indication: CHEMOTHERAPY
     Route: 065

REACTIONS (5)
  - Metastases to chest wall [Fatal]
  - Malignant neoplasm progression [Fatal]
  - Ascites [Unknown]
  - Adenoid cystic carcinoma [Fatal]
  - Metastases to central nervous system [Fatal]
